FAERS Safety Report 5418302-9 (Version None)
Quarter: 2007Q3

REPORT INFORMATION
  Report Type: 
  Country: None (occurrence: None)
  Receive Date: 20070817
  Receipt Date: 20070806
  Transmission Date: 20080115
  Serious: Yes (Hospitalization, Other)
  Sender: FDA-Public Use
  Company Number: US-MERCK-0708USA02054

PATIENT
  Age: 46 Year
  Sex: Male

DRUGS (5)
  1. HYDRODIURIL [Suspect]
     Indication: HYPERTENSION
     Route: 048
  2. ATENOLOL [Suspect]
     Route: 048
  3. CELEBREX [Suspect]
     Route: 065
  4. BENAZEPRIL HYDROCHLORIDE [Suspect]
     Route: 065
  5. DILANTIN [Concomitant]
     Route: 065

REACTIONS (6)
  - ACUTE SINUSITIS [None]
  - ASTHENIA [None]
  - CHEST DISCOMFORT [None]
  - CONVULSION [None]
  - HYPERHIDROSIS [None]
  - VERTIGO [None]
